FAERS Safety Report 14739675 (Version 8)
Quarter: 2018Q4

REPORT INFORMATION
  Report Type: Spontaneous
  Country: US (occurrence: US)
  Receive Date: 20180410
  Receipt Date: 20181120
  Transmission Date: 20190204
  Serious: Yes (Other)
  Sender: FDA-Public Use
  Company Number: PHEH2018US013579

PATIENT
  Age: 56 Year
  Sex: Male

DRUGS (2)
  1. AFINITOR [Suspect]
     Active Substance: EVEROLIMUS
     Indication: RENAL CANCER
     Dosage: 5 MG, QD
     Route: 048
     Dates: start: 20180314
  2. LENVATINIB [Suspect]
     Active Substance: LENVATINIB
     Indication: RENAL CANCER
     Dosage: 14 MG, QD
     Route: 048
     Dates: start: 20180315

REACTIONS (28)
  - Metastases to liver [Unknown]
  - Anorectal discomfort [Recovered/Resolved]
  - Facial pain [Unknown]
  - Red blood cell count decreased [Recovered/Resolved]
  - Renal cancer [Unknown]
  - Malignant neoplasm progression [Unknown]
  - Hepatic lesion [Unknown]
  - Weight decreased [Unknown]
  - Oedema [Unknown]
  - Ascites [Unknown]
  - Abdominal pain [Unknown]
  - Staphylococcal infection [Unknown]
  - Pleural effusion [Unknown]
  - Drug ineffective [Unknown]
  - Metastases to pelvis [Unknown]
  - Arthralgia [Unknown]
  - Pulmonary mass [Unknown]
  - Fatigue [Recovering/Resolving]
  - Blood pressure increased [Recovering/Resolving]
  - White blood cell count decreased [Unknown]
  - Abdominal discomfort [Unknown]
  - Lymphadenopathy [Recovered/Resolved]
  - Abdominal distension [Recovering/Resolving]
  - Haemoglobin decreased [Recovered/Resolved]
  - Anaemia [Unknown]
  - Acute kidney injury [Unknown]
  - Pain in extremity [Unknown]
  - Peripheral swelling [Unknown]

NARRATIVE: CASE EVENT DATE: 201808
